FAERS Safety Report 4724208-0 (Version None)
Quarter: 2005Q3

REPORT INFORMATION
  Report Type: 
  Country: None (occurrence: None)
  Receive Date: 20050726
  Receipt Date: 20050602
  Transmission Date: 20060218
  Serious: Yes (Hospitalization)
  Sender: FDA-Public Use
  Company Number: PHBS2005JP08033

PATIENT
  Age: 15 Year
  Sex: Female
  Weight: 47 kg

DRUGS (7)
  1. VOLTAREN [Suspect]
     Indication: PYREXIA
     Dosage: 25 MG, TID
     Route: 048
     Dates: start: 20050526, end: 20050531
  2. FLOMOX [Suspect]
     Dosage: 100 MG, TID
     Route: 048
     Dates: start: 20050526, end: 20050531
  3. DASEN [Suspect]
     Dosage: 5 MG, TID
     Route: 048
     Dates: start: 20050526, end: 20050531
  4. MUCOSTA [Suspect]
     Dosage: 100 MG, TID
     Route: 048
     Dates: start: 20050526
  5. PYRINAZIN [Concomitant]
     Dosage: 0.3 G/DAY
     Route: 048
     Dates: start: 20050531
  6. ZANTAC [Concomitant]
     Dosage: 300 MG/DAY
     Route: 048
     Dates: start: 20050610
  7. PREDNISOLONE [Concomitant]
     Dosage: 25 MG/DAY
     Route: 048
     Dates: start: 20050613

REACTIONS (2)
  - CYTOKINE STORM [None]
  - INTERLEUKIN LEVEL INCREASED [None]
